FAERS Safety Report 9663442 (Version 2)
Quarter: 2013Q4

REPORT INFORMATION
  Report Type: Spontaneous
  Country: SG (occurrence: SG)
  Receive Date: 20131101
  Receipt Date: 20131128
  Transmission Date: 20140711
  Serious: Yes (Other)
  Sender: FDA-Public Use
  Company Number: SG-JNJFOC-20131018005

PATIENT
  Age: 62 Year
  Sex: Male

DRUGS (2)
  1. XARELTO [Suspect]
     Indication: CEREBROVASCULAR ACCIDENT PROPHYLAXIS
     Dosage: END DATE: 10-OCT-2013.
     Route: 048
     Dates: start: 201211, end: 201310
  2. XARELTO [Suspect]
     Indication: ATRIAL FIBRILLATION
     Dosage: END DATE: 10-OCT-2013.
     Route: 048
     Dates: start: 201211, end: 201310

REACTIONS (1)
  - Pelvic venous thrombosis [Recovered/Resolved]
